FAERS Safety Report 12338943 (Version 3)
Quarter: 2016Q2

REPORT INFORMATION
  Report Type: Spontaneous
  Country: IT (occurrence: IT)
  Receive Date: 20160505
  Receipt Date: 20160523
  Transmission Date: 20160815
  Serious: Yes (Hospitalization)
  Sender: FDA-Public Use
  Company Number: IT-PFIZER INC-2016245440

PATIENT
  Age: 48 Year
  Sex: Female

DRUGS (6)
  1. ALPRAZOLAM. [Suspect]
     Active Substance: ALPRAZOLAM
     Dosage: 20 DF, TOTAL
     Route: 048
     Dates: start: 20160320, end: 20160320
  2. ZARELIS [Suspect]
     Active Substance: VENLAFAXINE HYDROCHLORIDE
     Dosage: 10 DF, TOTAL
     Route: 048
     Dates: start: 20160320, end: 20160320
  3. RIVOTRIL [Suspect]
     Active Substance: CLONAZEPAM
     Dosage: 0.5 MG, 2X/DAY
     Route: 048
     Dates: start: 2012
  4. ZARELIS [Suspect]
     Active Substance: VENLAFAXINE HYDROCHLORIDE
     Dosage: 150 MG (ONE TABLET) IN THE MORNING
     Route: 048
     Dates: start: 2012
  5. ALPRAZOLAM. [Suspect]
     Active Substance: ALPRAZOLAM
     Dosage: 2 MG IN THE EVENING
     Route: 048
     Dates: start: 2012
  6. RIVOTRIL [Suspect]
     Active Substance: CLONAZEPAM
     Dosage: 20 DF, TOTAL
     Route: 048
     Dates: start: 20160320, end: 20160320

REACTIONS (2)
  - Intentional self-injury [Recovering/Resolving]
  - Drug abuse [Recovering/Resolving]

NARRATIVE: CASE EVENT DATE: 20160320
